FAERS Safety Report 9964164 (Version 1)
Quarter: 2014Q1

REPORT INFORMATION
  Report Type: Other
  Country: US (occurrence: US)
  Receive Date: 20140305
  Receipt Date: 20140305
  Transmission Date: 20141002
  Serious: Yes (Death)
  Sender: FDA-Public Use
  Company Number: US-FRI-1000054792

PATIENT
  Age: 56 Year
  Sex: Male

DRUGS (4)
  1. CITALOPRAM [Suspect]
  2. ETHANOL [Suspect]
  3. LORAZEPAM [Suspect]
  4. MIRTAZAPINE [Suspect]

REACTIONS (1)
  - Drug abuse [Fatal]
